FAERS Safety Report 8799502 (Version 1)
Quarter: 2012Q4

REPORT INFORMATION
  Report Type: 
  Country: US (occurrence: US)
  Receive Date: 20120919
  Receipt Date: 20120919
  Transmission Date: 20130627
  Serious: No
  Sender: FDA-Public Use
  Company Number: US-PFIZER INC-2012210291

PATIENT
  Sex: Female

DRUGS (3)
  1. CHANTIX [Suspect]
  2. ZOLOFT [Suspect]
  3. NEURONTIN [Suspect]

REACTIONS (2)
  - Tremor [Unknown]
  - Stress [Unknown]
